FAERS Safety Report 7053913-9 (Version None)
Quarter: 2010Q4

REPORT INFORMATION
  Report Type: 
  Country: None (occurrence: None)
  Receive Date: 20101014
  Receipt Date: 20100930
  Transmission Date: 20110411
  Serious: Yes (Other)
  Sender: FDA-Public Use
  Company Number: 1000016665

PATIENT
  Age: 56 Year
  Sex: Male

DRUGS (2)
  1. NEBIVOLOL HCL [Suspect]
     Indication: PORTAL HYPERTENSION
     Dosage: 5 MG (5 MG, 1 IN 1 D), ORAL
     Route: 048
     Dates: start: 20100805
  2. ARADOIS (LOSARTAN POTASSIUM) (LOSARTAN POTASSIUM) [Concomitant]

REACTIONS (2)
  - GASTRIC HAEMORRHAGE [None]
  - OFF LABEL USE [None]
